FAERS Safety Report 9224574 (Version 1)
Quarter: 2013Q1

REPORT INFORMATION
  Report Type: Spontaneous
  Country: US (occurrence: None)
  Receive Date: 20120917
  Receipt Date: 20120917
  Transmission Date: 20140127
  Serious: Yes (Other)
  Sender: FDA-Public Use
  Company Number: 1000025200

PATIENT
  Sex: Female

DRUGS (2)
  1. CELEXA ( CITALOPRAM HYDROBROMIDE) [Suspect]
  2. ZYVOX ( LINEZOLID) [Suspect]

REACTIONS (1)
  - Unevaluable event [None]
